FAERS Safety Report 8447788-0 (Version None)
Quarter: 2012Q2

REPORT INFORMATION
  Report Type: 
  Country: None (occurrence: None)
  Receive Date: 20120619
  Receipt Date: 20120611
  Transmission Date: 20120825
  Serious: Yes (Other)
  Sender: FDA-Public Use
  Company Number: US-ASTRAZENECA-2012SE36272

PATIENT
  Age: 65 Year
  Sex: Female

DRUGS (1)
  1. CRESTOR [Suspect]
     Route: 048

REACTIONS (5)
  - HEPATOMEGALY [None]
  - HEPATIC ENZYME INCREASED [None]
  - ARTHRALGIA [None]
  - PAIN [None]
  - INFLUENZA LIKE ILLNESS [None]
